FAERS Safety Report 6093623-8 (Version None)
Quarter: 2009Q1

REPORT INFORMATION
  Report Type: 
  Country: None (occurrence: None)
  Receive Date: 20090226
  Receipt Date: 20090213
  Transmission Date: 20090719
  Serious: Yes (Hospitalization)
  Sender: FDA-Public Use
  Company Number: PHHY2008FR22431

PATIENT
  Sex: Female

DRUGS (9)
  1. VALSARTAN [Suspect]
     Indication: HYPERTENSION
     Route: 048
  2. ATENOLOL [Concomitant]
     Indication: HYPERTENSION
     Dosage: UNK
     Route: 048
  3. NAFTIDROFURYL [Concomitant]
     Route: 048
  4. ALLOPURINOL [Concomitant]
     Dosage: UNK
     Route: 048
  5. LOXEN [Concomitant]
     Indication: HYPERTENSION
     Dosage: UNK
     Route: 048
  6. PREVISCAN [Concomitant]
     Indication: CEREBROVASCULAR ACCIDENT
     Dosage: UNK
     Route: 048
  7. LEVOTHYROX [Concomitant]
     Indication: HYPOTHYROIDISM
     Dosage: UNK
  8. PRAVASTATINE ^SQUIBB^ [Concomitant]
  9. ARICEPT [Concomitant]

REACTIONS (9)
  - ABNORMAL BEHAVIOUR [None]
  - BLOOD CREATININE INCREASED [None]
  - CONFUSIONAL STATE [None]
  - CRYING [None]
  - HYPERAESTHESIA [None]
  - HYPERKALAEMIA [None]
  - MULTIPLE DRUG OVERDOSE [None]
  - PAIN [None]
  - RENAL FAILURE ACUTE [None]
